FAERS Safety Report 8809951 (Version 1)
Quarter: 2012Q4

REPORT INFORMATION
  Report Type: Report from Study
  Country: IT (occurrence: IT)
  Receive Date: 20120926
  Receipt Date: 20120926
  Transmission Date: 20130627
  Serious: Yes (Other)
  Sender: FDA-Public Use
  Company Number: IT-MERCK-1209ITA008768

PATIENT
  Age: 64 Year
  Sex: Male

DRUGS (4)
  1. PEGINTRON [Suspect]
     Indication: HEPATITIS C
     Dosage: 100 Microgram, qw
     Route: 058
     Dates: start: 20120412, end: 20120919
  2. VICTRELIS [Suspect]
     Indication: HEPATITIS C
     Dosage: 2400 mg, daily
     Route: 048
     Dates: start: 20120510, end: 20120919
  3. COPEGUS [Suspect]
     Indication: HEPATITIS C
     Dosage: 600 mg, qd
     Route: 048
     Dates: start: 20120510, end: 20120919
  4. COPEGUS [Suspect]
     Dosage: 1000 mg, qd
     Route: 048
     Dates: start: 20120412, end: 20120510

REACTIONS (4)
  - Gastric cancer [Unknown]
  - Gastrointestinal haemorrhage [Unknown]
  - Anaemia [Not Recovered/Not Resolved]
  - Anaemia [Not Recovered/Not Resolved]
